FAERS Safety Report 9266099 (Version 2)
Quarter: 2013Q2

REPORT INFORMATION
  Report Type: Spontaneous
  Country: FR (occurrence: FR)
  Receive Date: 20130501
  Receipt Date: 20130523
  Transmission Date: 20140414
  Serious: Yes (Hospitalization)
  Sender: FDA-Public Use
  Company Number: FR-ROCHE-1220084

PATIENT
  Age: 60 Year
  Sex: Male
  Weight: 47 kg

DRUGS (3)
  1. ZELBORAF [Suspect]
     Indication: METASTATIC MALIGNANT MELANOMA
     Route: 065
     Dates: start: 2012
  2. SELOKEEN [Concomitant]
     Route: 048
  3. LOPERAMIDE [Concomitant]
     Indication: DIARRHOEA
     Route: 048

REACTIONS (1)
  - Blood iron decreased [Unknown]
